FAERS Safety Report 18643558 (Version 1)
Quarter: 2020Q4

REPORT INFORMATION
  Report Type: Spontaneous
  Country: FR (occurrence: FR)
  Receive Date: 20201221
  Receipt Date: 20201221
  Transmission Date: 20210114
  Serious: Yes (Hospitalization, Other)
  Sender: FDA-Public Use
  Company Number: FR-PFIZER INC-2020495229

PATIENT
  Age: 55 Year
  Sex: Male
  Weight: 108 kg

DRUGS (4)
  1. QUETIAPINE. [Suspect]
     Active Substance: QUETIAPINE
     Indication: INTENTIONAL OVERDOSE
     Dosage: UNK (NP)
     Route: 048
     Dates: start: 20201123, end: 20201123
  2. DIAZEPAM. [Suspect]
     Active Substance: DIAZEPAM
     Indication: INTENTIONAL OVERDOSE
     Dosage: UNK (NP)
     Route: 048
     Dates: start: 20201123, end: 20201123
  3. VENLAFAXINE HCL [Suspect]
     Active Substance: VENLAFAXINE HYDROCHLORIDE
     Indication: INTENTIONAL OVERDOSE
     Dosage: UNK, (NP)
     Route: 048
     Dates: start: 20201123, end: 20201123
  4. ZOPICLONE [Suspect]
     Active Substance: ZOPICLONE
     Indication: INTENTIONAL OVERDOSE
     Dosage: UNK, (NP)
     Route: 048
     Dates: start: 20201123, end: 20201123

REACTIONS (4)
  - Altered state of consciousness [Recovered/Resolved]
  - Off label use [Unknown]
  - Poisoning deliberate [Recovered/Resolved]
  - Respiratory disorder [Recovered/Resolved]

NARRATIVE: CASE EVENT DATE: 20201123
